FAERS Safety Report 10227051 (Version 1)
Quarter: 2014Q2

REPORT INFORMATION
  Report Type: Report from Study
  Country: US (occurrence: US)
  Receive Date: 20140610
  Receipt Date: 20140610
  Transmission Date: 20141212
  Serious: Yes (Other)
  Sender: FDA-Public Use
  Company Number: US-ROCHE-1416041

PATIENT
  Age: 11 Year
  Sex: Male
  Weight: 33.5 kg

DRUGS (2)
  1. NUTROPIN AQ [Suspect]
     Indication: GROWTH HORMONE DEFICIENCY
     Route: 058
  2. RITALIN [Concomitant]

REACTIONS (2)
  - Vitamin D decreased [Unknown]
  - Attention deficit/hyperactivity disorder [Unknown]
